FAERS Safety Report 18564098 (Version 1)
Quarter: 2020Q4

REPORT INFORMATION
  Report Type: Spontaneous
  Country: US (occurrence: US)
  Receive Date: 20201130
  Receipt Date: 20201130
  Transmission Date: 20210114
  Serious: Yes (Other)
  Sender: FDA-Public Use
  Company Number: None

PATIENT
  Sex: Female
  Weight: 93.89 kg

DRUGS (2)
  1. ETHINYL ESTRADIOL\NORETHINDRONE ACETATE [Suspect]
     Active Substance: ETHINYL ESTRADIOL\NORETHINDRONE ACETATE
     Indication: CONTRACEPTION
     Dosage: ?          OTHER DOSE:0.02MG; 1MG;?
     Route: 048
     Dates: start: 201808, end: 201901
  2. TEVA^S GENERIC OF MINESTRIN 24FE [Suspect]
     Active Substance: ETHINYL ESTRADIOL\NORETHINDRONE ACETATE
     Indication: CONTRACEPTION
     Dosage: ?          OTHER DOSE:0.02MG; 1MG;?
     Route: 048
     Dates: start: 201805, end: 201808

REACTIONS (3)
  - Product substitution issue [None]
  - Migraine [None]
  - Malaise [None]
